FAERS Safety Report 12136278 (Version 2)
Quarter: 2017Q2

REPORT INFORMATION
  Report Type: Report from Study
  Country: CN (occurrence: CN)
  Receive Date: 20160302
  Receipt Date: 20170424
  Transmission Date: 20170829
  Serious: Yes (Other)
  Sender: FDA-Public Use
  Company Number: CN-SUN PHARMACEUTICAL INDUSTRIES LTD-2016R1-112386

PATIENT
  Age: 25 Month

DRUGS (2)
  1. VINCRISTINE [Suspect]
     Active Substance: VINCRISTINE
     Indication: HEPATOBLASTOMA RECURRENT
     Dosage: 1.5 MG/M2, DAILY
     Route: 042
  2. IRINOTECAN [Suspect]
     Active Substance: IRINOTECAN
     Indication: HEPATOBLASTOMA RECURRENT
     Dosage: 50 MG/M2, DAILY
     Route: 042

REACTIONS (5)
  - Vomiting [Unknown]
  - Therapeutic response decreased [Unknown]
  - Bone marrow failure [Unknown]
  - Neutropenia [Unknown]
  - Diarrhoea [Unknown]
